FAERS Safety Report 5533052-6 (Version None)
Quarter: 2007Q4

REPORT INFORMATION
  Report Type: 
  Country: None (occurrence: None)
  Receive Date: 20071204
  Receipt Date: 20071130
  Transmission Date: 20080405
  Serious: Yes (Hospitalization)
  Sender: FDA-Public Use
  Company Number: US-SP-2007-02214

PATIENT
  Age: 58 Year
  Sex: Male

DRUGS (5)
  1. THERACYS [Suspect]
     Indication: BLADDER CANCER
     Route: 043
     Dates: start: 20070607
  2. IMURAN [Concomitant]
  3. SULFASALAZINE [Concomitant]
  4. CELEBREX [Concomitant]
  5. AVODART [Concomitant]

REACTIONS (9)
  - BOVINE TUBERCULOSIS [None]
  - CHILLS [None]
  - COUGH [None]
  - FATIGUE [None]
  - HYPERHIDROSIS [None]
  - LETHARGY [None]
  - PYREXIA [None]
  - RENAL DISORDER [None]
  - WEIGHT DECREASED [None]
